FAERS Safety Report 13362009 (Version 1)
Quarter: 2017Q1

REPORT INFORMATION
  Report Type: Spontaneous
  Country: US (occurrence: US)
  Receive Date: 20170323
  Receipt Date: 20170323
  Transmission Date: 20170429
  Serious: No
  Sender: FDA-Public Use
  Company Number: US-TEVA-748983ACC

PATIENT
  Age: 56 Year
  Sex: Female

DRUGS (10)
  1. METOPROLOL. [Concomitant]
     Active Substance: METOPROLOL
  2. LOVASTATIN. [Concomitant]
     Active Substance: LOVASTATIN
  3. VITAMIN C [Concomitant]
     Active Substance: ASCORBIC ACID
  4. METAMUCIL [Concomitant]
     Active Substance: PLANTAGO SEED
  5. VITAMIN D3 [Concomitant]
     Active Substance: CHOLECALCIFEROL
  6. COPAXONE [Suspect]
     Active Substance: GLATIRAMER ACETATE
     Indication: MULTIPLE SCLEROSIS
     Route: 058
  7. OMEGA-3 ACID [Concomitant]
  8. AMANTADINE [Concomitant]
     Active Substance: AMANTADINE
  9. CALCIUM 600 [Concomitant]
  10. AFFEXOR [Concomitant]

REACTIONS (1)
  - Fall [Unknown]

NARRATIVE: CASE EVENT DATE: 201701
